FAERS Safety Report 21507360 (Version 1)
Quarter: 2022Q4

REPORT INFORMATION
  Report Type: Spontaneous
  Country: US (occurrence: None)
  Receive Date: 20221025
  Receipt Date: 20221025
  Transmission Date: 20230113
  Serious: Yes (Hospitalization, Disabling, Other)
  Sender: FDA-Public Use
  Company Number: None

PATIENT
  Age: 31 Year
  Sex: Female
  Weight: 70.31 kg

DRUGS (1)
  1. PARAGARD T 380A [Suspect]
     Active Substance: COPPER
     Indication: Contraception

REACTIONS (13)
  - Asthma [None]
  - Vision blurred [None]
  - Chest discomfort [None]
  - Anxiety [None]
  - Feeling abnormal [None]
  - Alopecia [None]
  - Asthenia [None]
  - Hypoaesthesia [None]
  - Hypoaesthesia [None]
  - Heart rate increased [None]
  - Depression [None]
  - Blood pressure increased [None]
  - Toxicity to various agents [None]

NARRATIVE: CASE EVENT DATE: 20220603
